FAERS Safety Report 12608469 (Version 3)
Quarter: 2016Q4

REPORT INFORMATION
  Report Type: Report from Study
  Country: PL (occurrence: PL)
  Receive Date: 20160729
  Receipt Date: 20161108
  Transmission Date: 20170207
  Serious: Yes (Other)
  Sender: FDA-Public Use
  Company Number: PHHO2016PL008593

PATIENT
  Age: 39 Year
  Sex: Female
  Weight: 75 kg

DRUGS (7)
  1. EUTHYROX [Concomitant]
     Active Substance: LEVOTHYROXINE SODIUM
     Dosage: 112 MG, UNK
     Route: 065
     Dates: start: 20160620
  2. VIGANTOLETTEN [Concomitant]
     Active Substance: CHOLECALCIFEROL
     Indication: VITAMIN D DEFICIENCY
     Dosage: (1000 I.M, 1X1 PER DAY)
     Route: 065
     Dates: start: 20130618
  3. LANREOTIDE [Concomitant]
     Active Substance: LANREOTIDE
     Indication: PRODUCT USED FOR UNKNOWN INDICATION
     Dosage: 120 MG, UNK (EVERY 4 WEEKS)
     Route: 058
     Dates: start: 20160924
  4. VIGANTOLETTEN [Concomitant]
     Active Substance: CHOLECALCIFEROL
     Dosage: (2000, 1X1 PER DAY)
     Route: 065
     Dates: start: 20160620
  5. SOM230 [Suspect]
     Active Substance: PASIREOTIDE
     Indication: ACROMEGALY
     Dosage: 40 MG, (1X1, EVERY FOUR WEEKS)
     Route: 030
     Dates: start: 20151118, end: 20160603
  6. KALII IODIDUM [Concomitant]
     Indication: PROPHYLAXIS
     Dosage: 200 UG, UNK (1 X1 ) 6WEEKLY)
     Route: 065
     Dates: start: 20160620, end: 20160722
  7. EUTHYROX [Concomitant]
     Active Substance: LEVOTHYROXINE SODIUM
     Indication: HYPOTHYROIDISM
     Dosage: 100 UG, UNK
     Route: 065
     Dates: start: 20131130, end: 20160615

REACTIONS (2)
  - Abortion spontaneous [Unknown]
  - Maternal exposure during pregnancy [Unknown]

NARRATIVE: CASE EVENT DATE: 20160726
